FAERS Safety Report 5055525-5 (Version None)
Quarter: 2006Q3

REPORT INFORMATION
  Report Type: 
  Country: None (occurrence: None)
  Receive Date: 20060717
  Receipt Date: 20060717
  Transmission Date: 20061208
  Serious: Yes (Death)
  Sender: FDA-Public Use
  Company Number: None

PATIENT
  Age: 71 Year
  Sex: Male
  Weight: 77.5651 kg

DRUGS (4)
  1. AVASTIN [Suspect]
     Indication: NON-SMALL CELL LUNG CANCER
     Dosage: 388 MG IV DRIP
     Route: 041
     Dates: start: 20060705
  2. AVASTIN [Suspect]
     Indication: NON-SMALL CELL LUNG CANCER
     Dosage: 388 MG IV DRIP
     Route: 041
     Dates: start: 20060621
  3. PACLITAXEL [Concomitant]
  4. CARBOPLATIN [Concomitant]

REACTIONS (2)
  - INTESTINAL PERFORATION [None]
  - SEPTIC SHOCK [None]
